FAERS Safety Report 22145804 (Version 1)
Quarter: 2023Q1

REPORT INFORMATION
  Report Type: Spontaneous
  Country: US (occurrence: US)
  Receive Date: 20230328
  Receipt Date: 20230328
  Transmission Date: 20230417
  Serious: Yes (Other)
  Sender: FDA-Public Use
  Company Number: US-GSK-US2023GSK044673

PATIENT

DRUGS (9)
  1. LAMOTRIGINE [Suspect]
     Active Substance: LAMOTRIGINE
     Indication: Bipolar II disorder
     Dosage: UNK
  2. LAMOTRIGINE [Suspect]
     Active Substance: LAMOTRIGINE
     Indication: Major depression
  3. LITHIUM [Suspect]
     Active Substance: LITHIUM
     Indication: Bipolar II disorder
     Dosage: UNK
  4. LITHIUM [Suspect]
     Active Substance: LITHIUM
     Indication: Major depression
  5. VALPROATE [Suspect]
     Active Substance: VALPROIC ACID
     Indication: Bipolar II disorder
     Dosage: UNK
  6. VALPROATE [Suspect]
     Active Substance: VALPROIC ACID
     Indication: Major depression
  7. QUETIAPINE [Suspect]
     Active Substance: QUETIAPINE
     Indication: Bipolar II disorder
     Dosage: UNK
  8. QUETIAPINE [Suspect]
     Active Substance: QUETIAPINE
     Indication: Major depression
  9. TOPIRAMATE [Suspect]
     Active Substance: TOPIRAMATE
     Indication: Bipolar II disorder
     Dosage: 50 MG, BID

REACTIONS (2)
  - Hypothyroidism [Unknown]
  - Treatment failure [Unknown]
